FAERS Safety Report 7745281-1 (Version None)
Quarter: 2011Q3

REPORT INFORMATION
  Report Type: 
  Country: None (occurrence: None)
  Receive Date: 20110907
  Receipt Date: 20110825
  Transmission Date: 20111222
  Serious: Yes (Other)
  Sender: FDA-Public Use
  Company Number: JPI-P-016779

PATIENT
  Age: 39 Year
  Sex: Female

DRUGS (3)
  1. XYREM [Suspect]
     Indication: CATAPLEXY
     Dosage: 6 GM(3 GM, 2 IN 1 D), ORAL
     Route: 048
     Dates: start: 20110824, end: 20110824
  2. VENLAFAXINE HYDROCHLORIDE [Concomitant]
  3. ARMODAFINIL [Concomitant]

REACTIONS (3)
  - HALLUCINATION [None]
  - AGGRESSION [None]
  - NAUSEA [None]
